FAERS Safety Report 14515197 (Version 6)
Quarter: 2018Q3

REPORT INFORMATION
  Report Type: Spontaneous
  Country: JP (occurrence: JP)
  Receive Date: 20180210
  Receipt Date: 20180803
  Transmission Date: 20181010
  Serious: Yes (Other)
  Sender: FDA-Public Use
  Company Number: JP-AMGEN-JPNSP2018018350

PATIENT
  Age: 75 Year
  Sex: Female
  Weight: 45 kg

DRUGS (14)
  1. NESP [Suspect]
     Active Substance: DARBEPOETIN ALFA
     Dosage: 50 MCG, QD
     Route: 058
     Dates: start: 20140117, end: 20140117
  2. ATORVASTATIN [Concomitant]
     Active Substance: ATORVASTATIN
     Indication: HYPERLIPIDAEMIA
     Dosage: 5 MG, QD
     Route: 048
     Dates: start: 20121203
  3. NESP [Suspect]
     Active Substance: DARBEPOETIN ALFA
     Indication: NEPHROGENIC ANAEMIA
     Dosage: 60 MCG, QMO
     Route: 058
     Dates: start: 20131011
  4. MIRCERA [Concomitant]
     Active Substance: METHOXY POLYETHYLENE GLYCOL-EPOETIN BETA
     Dosage: 75 MCG, Q2WK
     Route: 065
  5. BLOPRESS [Concomitant]
     Active Substance: CANDESARTAN CILEXETIL
     Indication: HYPERTENSION
     Dosage: 12 MG, QD
     Route: 048
     Dates: start: 20121203
  6. AMLODIPINE [Concomitant]
     Active Substance: AMLODIPINE BESYLATE
     Indication: HYPERTENSION
     Dosage: 2.5 MG, QD
     Route: 048
     Dates: start: 20121203
  7. NESP [Suspect]
     Active Substance: DARBEPOETIN ALFA
     Dosage: 30 MCG, Q4WK
     Route: 058
     Dates: start: 20160411
  8. FERROMIA [Concomitant]
     Active Substance: SODIUM FERROUS CITRATE
     Indication: IRON DEFICIENCY ANAEMIA
     Dosage: 50 MG, QD
     Route: 048
     Dates: start: 20121203
  9. NESP [Suspect]
     Active Substance: DARBEPOETIN ALFA
     Dosage: 40 MCG, UNK
     Route: 058
  10. NESP [Suspect]
     Active Substance: DARBEPOETIN ALFA
     Dosage: 60 MCG, UNK
     Route: 058
  11. METHYCOBAL [Concomitant]
     Active Substance: METHYLCOBALAMIN
     Indication: NEUROPATHY PERIPHERAL
     Dosage: 500 MCG, TID
     Route: 048
     Dates: start: 20121203
  12. LANSOPRAZOLE. [Concomitant]
     Active Substance: LANSOPRAZOLE
     Indication: CHRONIC GASTRITIS
     Dosage: 15 MG, QD
     Route: 048
     Dates: start: 20121203
  13. NESP [Suspect]
     Active Substance: DARBEPOETIN ALFA
     Indication: NEPHROSCLEROSIS
     Dosage: 30 TO 100 MCG BEFORE INITIATION OF HAEMODIALYSIS
     Route: 058
     Dates: start: 20131207, end: 20140117
  14. NESP [Suspect]
     Active Substance: DARBEPOETIN ALFA
     Dosage: 60 MCG, QWK
     Route: 058
     Dates: start: 20161004, end: 20161011

REACTIONS (3)
  - Drug ineffective [Unknown]
  - Aplasia pure red cell [Recovered/Resolved]
  - Aplasia pure red cell [Recovered/Resolved]

NARRATIVE: CASE EVENT DATE: 20140212
